FAERS Safety Report 26040225 (Version 1)
Quarter: 2025Q4

REPORT INFORMATION
  Report Type: Spontaneous
  Country: CN (occurrence: CN)
  Receive Date: 20251113
  Receipt Date: 20251113
  Transmission Date: 20260117
  Serious: Yes (Other)
  Sender: RANBAXY
  Company Number: CN-SUN PHARMACEUTICAL INDUSTRIES LTD-2025R1-535584

PATIENT
  Age: 81 Year
  Sex: Male

DRUGS (3)
  1. MEROPENEM [Suspect]
     Active Substance: MEROPENEM
     Indication: Antibiotic therapy
     Dosage: 1.0 GRAM, DRIP
     Route: 042
  2. VANCOMYCIN [Suspect]
     Active Substance: VANCOMYCIN
     Indication: Antibiotic therapy
     Dosage: 0.5 GRAM, BID, Q12H
     Route: 065
  3. MINOCYCLINE [Suspect]
     Active Substance: MINOCYCLINE HYDROCHLORIDE
     Indication: Antibiotic therapy
     Dosage: 100 MILLIGRAM, QD
     Route: 065

REACTIONS (2)
  - Disease recurrence [Unknown]
  - Drug ineffective [Unknown]
